FAERS Safety Report 5868892-7 (Version None)
Quarter: 2008Q3

REPORT INFORMATION
  Report Type: 
  Country: None (occurrence: None)
  Receive Date: 20080902
  Receipt Date: 20080902
  Transmission Date: 20090109
  Serious: Yes (Disabling)
  Sender: FDA-Public Use
  Company Number: None

PATIENT
  Age: 11 Year
  Sex: Male
  Weight: 40 kg

DRUGS (1)
  1. CHLORAPREP [Suspect]
     Indication: NAIL OPERATION
     Dosage: ONE TIME PREP TOP SURGICAL PREP
     Route: 061
     Dates: start: 20080805, end: 20080805

REACTIONS (1)
  - BLISTER [None]
